FAERS Safety Report 8115447-X (Version None)
Quarter: 2012Q1

REPORT INFORMATION
  Report Type: 
  Country: None (occurrence: None)
  Receive Date: 20120206
  Receipt Date: 20120203
  Transmission Date: 20120608
  Serious: Yes (Other)
  Sender: FDA-Public Use
  Company Number: BR-PFIZER INC-2010177204

PATIENT
  Age: 73 Year
  Sex: Male

DRUGS (3)
  1. OLMESARTAN MEDOXOMIL AND HYDROCHLOROTHIZIDE [Suspect]
     Indication: HYPERTENSION
     Dosage: 20/12.5 MG; 1X/DAY
     Route: 048
     Dates: start: 20090623
  2. NORVASC [Suspect]
     Indication: BLOOD PRESSURE
     Dosage: 5 MG (ONE TABLET), 1X/DAY
     Route: 048
     Dates: start: 20090623
  3. OLMESARTAN MEDOXOMIL [Suspect]
     Indication: HYPERTENSION
     Dosage: 20 MG, 1X/DAY
     Route: 048
     Dates: start: 20090623

REACTIONS (2)
  - DRUG INEFFECTIVE [None]
  - BLOOD PRESSURE FLUCTUATION [None]
